FAERS Safety Report 12220689 (Version 2)
Quarter: 2016Q2

REPORT INFORMATION
  Report Type: Spontaneous
  Country: DE (occurrence: DE)
  Receive Date: 20160330
  Receipt Date: 20160413
  Transmission Date: 20160815
  Serious: Yes (Other)
  Sender: FDA-Public Use
  Company Number: GXKR2016DE001549

PATIENT
  Age: 75 Year
  Sex: Male
  Weight: 76 kg

DRUGS (3)
  1. CANDESARTAN [Concomitant]
     Active Substance: CANDESARTAN
     Indication: PRODUCT USED FOR UNKNOWN INDICATION
  2. AMLODIPINE [Suspect]
     Active Substance: AMLODIPINE BESYLATE
     Indication: HYPERTENSION
     Dosage: 2.5 MG, QHS
     Route: 048
     Dates: start: 20160316, end: 20160318
  3. METFORMIN [Concomitant]
     Active Substance: METFORMIN HYDROCHLORIDE
     Indication: PRODUCT USED FOR UNKNOWN INDICATION

REACTIONS (7)
  - Salivary hypersecretion [Recovering/Resolving]
  - Pharyngeal oedema [Recovering/Resolving]
  - Pyrexia [Recovering/Resolving]
  - Eye disorder [Recovering/Resolving]
  - Chapped lips [Not Recovered/Not Resolved]
  - Lip swelling [Recovering/Resolving]
  - Dysphagia [Recovering/Resolving]

NARRATIVE: CASE EVENT DATE: 20160319
